FAERS Safety Report 21356410 (Version 1)
Quarter: 2022Q3

REPORT INFORMATION
  Report Type: Spontaneous
  Country: US (occurrence: US)
  Receive Date: 20220920
  Receipt Date: 20220920
  Transmission Date: 20221027
  Serious: No
  Sender: FDA-Public Use
  Company Number: US-PFIZER INC-202201169955

PATIENT
  Age: 79 Year
  Sex: Female
  Weight: 72.57 kg

DRUGS (1)
  1. IBRANCE [Suspect]
     Active Substance: PALBOCICLIB
     Dosage: 100MG TABLET ONCE A DAY BY MOUTH FOR 21 DAYS
     Route: 048
     Dates: start: 20220804, end: 20220824

REACTIONS (2)
  - Cough [Unknown]
  - Auditory disorder [Unknown]
